FAERS Safety Report 7220668-4 (Version None)
Quarter: 2011Q1

REPORT INFORMATION
  Report Type: 
  Country: None (occurrence: None)
  Receive Date: 20110111
  Receipt Date: 20110103
  Transmission Date: 20110831
  Serious: Yes (Hospitalization)
  Sender: FDA-Public Use
  Company Number: BR-ELI_LILLY_AND_COMPANY-BR201101000371

PATIENT
  Sex: Male
  Weight: 81 kg

DRUGS (9)
  1. METFORMIN HYDROCHLORIDE [Concomitant]
     Indication: DIABETES MELLITUS
     Dosage: UNK, 3/D
     Route: 048
  2. FELYPRESSIN W/PRILOCAINE HYDROCHLORIDE [Concomitant]
     Indication: BLOOD CHOLESTEROL
     Dosage: UNK, UNKNOWN
     Route: 048
  3. AAS [Concomitant]
     Indication: BLOOD DISORDER
     Dosage: 100 MG, 2/D
     Route: 048
  4. HUMALOG MIX 75/25 [Suspect]
     Indication: DIABETES MELLITUS
     Dosage: 30 IU, EACH MORNING
     Route: 058
     Dates: start: 20060101
  5. PURAN T4 [Concomitant]
     Indication: HYPOTHYROIDISM
     Dosage: 50 MG, DAILY (1/D)
     Route: 048
  6. CLOPIDOGREL BISULFATE [Concomitant]
     Indication: PROMOTION OF PERIPHERAL CIRCULATION
     Dosage: 75 MG, DAILY (1/D)
     Route: 048
  7. METFORMIN HYDROCHLORIDE [Concomitant]
     Indication: BLOOD CHOLESTEROL
     Dosage: 750 MG, 2/D
     Route: 048
  8. ARADOIS [Concomitant]
     Indication: BLOOD CHOLESTEROL
     Dosage: 50 MG, DAILY (1/D)
     Route: 048
  9. CRESTOR [Concomitant]
     Indication: BLOOD CHOLESTEROL
     Dosage: UNK, UNKNOWN
     Route: 048

REACTIONS (3)
  - ANGIOPLASTY [None]
  - LIMB INJURY [None]
  - HYPERGLYCAEMIA [None]
